FAERS Safety Report 8281562-3 (Version None)
Quarter: 2012Q2

REPORT INFORMATION
  Report Type: 
  Country: None (occurrence: None)
  Receive Date: 20120413
  Receipt Date: 20120406
  Transmission Date: 20120825
  Serious: Yes (Hospitalization)
  Sender: FDA-Public Use
  Company Number: US-BAYER-201039764NA

PATIENT
  Age: 16 Year
  Sex: Female
  Weight: 61.224 kg

DRUGS (15)
  1. RETIN-A MICRO [Concomitant]
     Dosage: UNK
     Dates: start: 20080626, end: 20081025
  2. CLARITIN [Concomitant]
     Dosage: UNK
     Dates: start: 20091012
  3. DOXYCYCLIN [DOXYCYCLINE HYCLATE] [Concomitant]
     Indication: ACNE
     Dosage: UNK
     Dates: start: 20080626, end: 20080915
  4. OVER THE COUNTER MEDICATIONS [Concomitant]
  5. DORIC [Concomitant]
  6. YAZ [Suspect]
     Indication: ACNE
     Dosage: UNK
     Route: 048
     Dates: start: 20081001, end: 20090701
  7. YASMIN [Suspect]
     Indication: ACNE
     Dosage: UNK
     Dates: start: 20081120, end: 20090724
  8. VANOXIDE HC [Concomitant]
     Dosage: UNK
     Dates: start: 20080630, end: 20081025
  9. LOESTRIN 1.5/30 [Concomitant]
     Dosage: UNK
     Dates: start: 20091012
  10. CORRECTOL [Concomitant]
  11. DORYX [Concomitant]
     Indication: ACNE
     Dosage: UNK
     Dates: start: 20081026, end: 20081128
  12. NAPROXEN (ALEVE) [Concomitant]
     Dosage: UNK
     Dates: start: 20091012
  13. TYLENOL (CAPLET) [Concomitant]
     Dosage: UNK
     Dates: start: 20091012
  14. SYMPATHOMIMETICS [Concomitant]
     Dosage: UNK
     Dates: start: 20081113
  15. MINOCYCLINE HCL [Concomitant]
     Indication: ACNE
     Dosage: UNK
     Dates: start: 20090114, end: 20090218

REACTIONS (3)
  - BILIARY DYSKINESIA [None]
  - GALLBLADDER DISORDER [None]
  - PAIN [None]
